FAERS Safety Report 5271843-X (Version None)
Quarter: 2007Q1

REPORT INFORMATION
  Report Type: 
  Country: None (occurrence: None)
  Receive Date: 20070321
  Receipt Date: 20061116
  Transmission Date: 20070707
  Serious: Yes (Other)
  Sender: FDA-Public Use
  Company Number: US-PFIZER INC-2007020192

PATIENT
  Sex: Female

DRUGS (2)
  1. ZYVOX [Suspect]
     Indication: PNEUMONIA
  2. ANTIBIOTICS [Suspect]

REACTIONS (1)
  - GUILLAIN-BARRE SYNDROME [None]
